FAERS Safety Report 7031505-5 (Version None)
Quarter: 2010Q4

REPORT INFORMATION
  Report Type: 
  Country: None (occurrence: None)
  Receive Date: 20101005
  Receipt Date: 20101005
  Transmission Date: 20110411
  Serious: No
  Sender: FDA-Public Use
  Company Number: None

PATIENT
  Sex: Female

DRUGS (1)
  1. SPRYCEL [Suspect]
     Dosage: 100 MG PO TAKE 1 TABLET BY MOUTH ONCE A DAY
     Route: 048

REACTIONS (1)
  - HEADACHE [None]
